FAERS Safety Report 5893574-5 (Version None)
Quarter: 2008Q3

REPORT INFORMATION
  Report Type: 
  Country: None (occurrence: None)
  Receive Date: 20080918
  Receipt Date: 20080910
  Transmission Date: 20090109
  Serious: Yes (Other)
  Sender: FDA-Public Use
  Company Number: 100#08#2008-03902

PATIENT
  Age: 50 Year
  Sex: Female

DRUGS (1)
  1. WARFARIN SODIUM [Suspect]
     Indication: COAGULOPATHY

REACTIONS (3)
  - HAEMORRHAGIC CYST [None]
  - OSTEOARTHRITIS [None]
  - PSEUDOXANTHOMA ELASTICUM [None]
